FAERS Safety Report 4363637-4 (Version None)
Quarter: 2004Q2

REPORT INFORMATION
  Report Type: 
  Country: None (occurrence: None)
  Receive Date: 20040517
  Receipt Date: 20040414
  Transmission Date: 20050107
  Serious: No
  Sender: FDA-Public Use
  Company Number: S04-USA-02101-01

PATIENT
  Age: 81 Year
  Sex: Female

DRUGS (4)
  1. NAMENDA [Suspect]
     Indication: DEMENTIA ALZHEIMER'S TYPE
     Dosage: 5 MG QD PO
     Route: 048
     Dates: start: 20040402, end: 20040408
  2. NAMENDA [Suspect]
     Indication: DEMENTIA ALZHEIMER'S TYPE
     Dosage: 10 MG QD PO
     Route: 048
     Dates: start: 20040409
  3. ZYPREXA [Concomitant]
  4. TRAZODONE HCL [Concomitant]

REACTIONS (4)
  - DYSPHAGIA [None]
  - INSOMNIA [None]
  - OEDEMA PERIPHERAL [None]
  - SALIVARY HYPERSECRETION [None]
